FAERS Safety Report 8995964 (Version 1)
Quarter: 2013Q1

REPORT INFORMATION
  Report Type: Spontaneous
  Country: US (occurrence: US)
  Receive Date: 20130103
  Receipt Date: 20130103
  Transmission Date: 20140127
  Serious: No
  Sender: FDA-Public Use
  Company Number: US-ABBOTT-12P-163-0933887-00

PATIENT
  Sex: Male

DRUGS (7)
  1. SYNTHROID [Suspect]
     Indication: THYROIDECTOMY
     Dates: start: 201104
  2. SYNTHROID [Suspect]
     Indication: THYROIDECTOMY
  3. SYNTHROID [Suspect]
     Indication: THYROIDECTOMY
  4. ARMOUR THYROID [Suspect]
     Indication: PRODUCT USED FOR UNKNOWN INDICATION
  5. SYMBICORT [Concomitant]
     Indication: PRODUCT USED FOR UNKNOWN INDICATION
  6. SPIRIVA [Concomitant]
     Indication: PRODUCT USED FOR UNKNOWN INDICATION
  7. ALBUTEROL [Concomitant]
     Indication: PRODUCT USED FOR UNKNOWN INDICATION

REACTIONS (1)
  - Dyspnoea [Not Recovered/Not Resolved]
